FAERS Safety Report 6882051-0 (Version None)
Quarter: 2010Q3

REPORT INFORMATION
  Report Type: 
  Country: None (occurrence: None)
  Receive Date: 20100729
  Receipt Date: 20100716
  Transmission Date: 20110219
  Serious: Yes (Hospitalization)
  Sender: FDA-Public Use
  Company Number: CA-ELI_LILLY_AND_COMPANY-CA201007003710

PATIENT
  Age: 14 Year
  Sex: Female

DRUGS (3)
  1. STRATTERA [Suspect]
     Dosage: 25 MG, UNK
     Dates: start: 20100415, end: 20100429
  2. STRATTERA [Suspect]
     Dosage: 40 MG, UNK
     Dates: start: 20100430, end: 20100514
  3. STRATTERA [Suspect]
     Dosage: 60 MG, UNK
     Dates: start: 20100515

REACTIONS (6)
  - ABDOMINAL PAIN [None]
  - CONSTIPATION [None]
  - DECREASED APPETITE [None]
  - NAUSEA [None]
  - RECTAL HAEMORRHAGE [None]
  - WEIGHT DECREASED [None]
